FAERS Safety Report 23303650 (Version 3)
Quarter: 2024Q1

REPORT INFORMATION
  Report Type: Spontaneous
  Country: US (occurrence: US)
  Receive Date: 20231215
  Receipt Date: 20240205
  Transmission Date: 20240410
  Serious: Yes (Hospitalization)
  Sender: FDA-Public Use
  Company Number: US-PFIZER INC-PV202300202990

PATIENT
  Age: 95 Year
  Sex: Male

DRUGS (1)
  1. VYNDAMAX [Suspect]
     Active Substance: TAFAMIDIS
     Indication: Amyloidosis
     Dosage: 61 MG

REACTIONS (6)
  - Condition aggravated [Unknown]
  - COVID-19 [Unknown]
  - Gait disturbance [Unknown]
  - Confusional state [Unknown]
  - Eating disorder [Unknown]
  - Product dose omission issue [Unknown]
